FAERS Safety Report 17398244 (Version 10)
Quarter: 2021Q3

REPORT INFORMATION
  Report Type: Report from Study
  Country: None (occurrence: FR)
  Receive Date: 20200210
  Receipt Date: 20210731
  Transmission Date: 20211014
  Serious: Yes (Other)
  Sender: FDA-Public Use
  Company Number: FR-ABBVIE-20K-056-3263487-00

PATIENT
  Age: 71 Year
  Sex: Female
  Weight: 74 kg

DRUGS (21)
  1. MIANSERINE [Concomitant]
     Active Substance: MIANSERIN HYDROCHLORIDE
     Indication: DEPRESSION
     Dates: start: 20191106
  2. FASTURTEC [Concomitant]
     Active Substance: RASBURICASE
     Dates: start: 20191230, end: 20191230
  3. PYOSTACINE [Concomitant]
     Active Substance: PRISTINAMYCIN
     Indication: ANTIFUNGAL TREATMENT
     Dates: start: 20200310, end: 202003
  4. VALACICLOVIR [Concomitant]
     Active Substance: VALACYCLOVIR HYDROCHLORIDE
     Indication: INFECTION PROPHYLAXIS
     Dates: start: 20200107
  5. RITUXIMAB. [Concomitant]
     Active Substance: RITUXIMAB
     Indication: CHRONIC LYMPHOCYTIC LEUKAEMIA
     Dates: start: 20090114, end: 20090708
  6. VENETOCLAX. [Suspect]
     Active Substance: VENETOCLAX
     Route: 048
     Dates: start: 20200128, end: 20200203
  7. FASTURTEC [Concomitant]
     Active Substance: RASBURICASE
     Indication: PROPHYLAXIS
     Dates: start: 20191217, end: 20191217
  8. FUNGIZONE [Concomitant]
     Active Substance: AMPHOTERICIN B
     Indication: ORAL FUNGAL INFECTION
     Dates: start: 20200107, end: 20200224
  9. RITUXIMAB. [Concomitant]
     Active Substance: RITUXIMAB
     Dates: start: 20200203, end: 20200702
  10. APIXABAN [Concomitant]
     Active Substance: APIXABAN
     Indication: POST THROMBOTIC SYNDROME
     Dates: start: 202006
  11. DAFALGAN [Concomitant]
     Active Substance: ACETAMINOPHEN
     Indication: PAIN
     Dates: start: 2019
  12. INNOHEP [Concomitant]
     Active Substance: TINZAPARIN SODIUM
     Indication: PROPHYLAXIS
     Dates: start: 201911
  13. SPASFON [Concomitant]
     Indication: ABDOMINAL PAIN
     Dates: start: 20200204
  14. ALPRAZOLAM. [Concomitant]
     Active Substance: ALPRAZOLAM
     Indication: ANXIETY
     Dates: start: 20191218
  15. VENETOCLAX. [Suspect]
     Active Substance: VENETOCLAX
     Route: 048
     Dates: start: 20191224, end: 20200107
  16. VENETOCLAX. [Suspect]
     Active Substance: VENETOCLAX
     Route: 048
     Dates: start: 20200204
  17. TRAMADOL. [Concomitant]
     Active Substance: TRAMADOL
     Indication: PAIN
     Dates: start: 20191217
  18. VENETOCLAX. [Suspect]
     Active Substance: VENETOCLAX
     Indication: CHRONIC LYMPHOCYTIC LEUKAEMIA
     Route: 048
     Dates: start: 20191217, end: 20191223
  19. VENETOCLAX. [Suspect]
     Active Substance: VENETOCLAX
     Route: 048
     Dates: start: 20200108, end: 20200127
  20. ZITHROMAX [Concomitant]
     Active Substance: AZITHROMYCIN DIHYDRATE
     Indication: PNEUMONIA
     Dates: start: 20200225, end: 20200324
  21. FASTURTEC [Concomitant]
     Active Substance: RASBURICASE
     Dates: start: 20191223, end: 20191223

REACTIONS (27)
  - Bronchitis [Recovered/Resolved]
  - Hypocalcaemia [Not Recovered/Not Resolved]
  - Diarrhoea [Recovered/Resolved]
  - Hyperkalaemia [Recovered/Resolved with Sequelae]
  - Haematoma [Recovered/Resolved]
  - Oral fungal infection [Recovered/Resolved]
  - Hyperuricaemia [Recovered/Resolved]
  - Neutropenia [Recovered/Resolved]
  - Abdominal pain [Recovered/Resolved]
  - Hypoxia [Recovered/Resolved with Sequelae]
  - Oedema peripheral [Not Recovered/Not Resolved]
  - Cholestasis [Not Recovered/Not Resolved]
  - Hyperphosphataemia [Recovered/Resolved]
  - Hyperkalaemia [Recovered/Resolved]
  - Rhinitis [Recovered/Resolved]
  - Bronchitis chronic [Recovered/Resolved]
  - Hypogammaglobulinaemia [Recovered/Resolved]
  - Acute kidney injury [Recovered/Resolved]
  - Palpitations [Recovered/Resolved]
  - Diarrhoea [Recovered/Resolved]
  - Nausea [Recovered/Resolved]
  - Leukopenia [Recovered/Resolved]
  - Neutropenia [Recovered/Resolved]
  - Acute sinusitis [Recovered/Resolved]
  - Thymus disorder [Not Recovered/Not Resolved]
  - Inappropriate schedule of product administration [Unknown]
  - Pneumonia [Recovered/Resolved with Sequelae]

NARRATIVE: CASE EVENT DATE: 201912
